FAERS Safety Report 24056610 (Version 2)
Quarter: 2024Q3

REPORT INFORMATION
  Report Type: Spontaneous
  Country: IQ (occurrence: IQ)
  Receive Date: 20240705
  Receipt Date: 20240710
  Transmission Date: 20241016
  Serious: Yes (Death, Other)
  Sender: MERCK
  Company Number: IQ-009507513-2407IRQ002080

PATIENT
  Sex: Male

DRUGS (1)
  1. KEYTRUDA [Suspect]
     Active Substance: PEMBROLIZUMAB
     Indication: Lung adenocarcinoma
     Dosage: 200 MILLIGRAM FOR 34 CYCLES
     Dates: start: 20200924, end: 20230227

REACTIONS (3)
  - Cardiac failure [Fatal]
  - Lymphangiosis carcinomatosa [Unknown]
  - Incorrect product administration duration [Unknown]

NARRATIVE: CASE EVENT DATE: 20230227
